FAERS Safety Report 4649874-X (Version None)
Quarter: 2005Q2

REPORT INFORMATION
  Report Type: 
  Country: None (occurrence: None)
  Receive Date: 20050502
  Receipt Date: 20050119
  Transmission Date: 20051028
  Serious: Yes (Hospitalization, Other)
  Sender: FDA-Public Use
  Company Number: US-MERCK-0501USA03252

PATIENT
  Age: 66 Year
  Sex: Female
  Weight: 54 kg

DRUGS (17)
  1. VIOXX [Suspect]
     Indication: ARTHRITIS
     Route: 048
     Dates: start: 20010101, end: 20040101
  2. PEPCID [Concomitant]
     Route: 065
  3. CELEBREX [Concomitant]
     Route: 065
     Dates: start: 20040101, end: 20040101
  4. BEXTRA [Concomitant]
     Route: 065
     Dates: start: 20040101, end: 20040101
  5. TOPROL-XL [Concomitant]
     Route: 065
  6. ST. JOSEPH ADULT CHEWABLE ASPIRIN [Concomitant]
     Route: 065
     Dates: start: 20040101
  7. TAMOXIFEN CITRATE [Concomitant]
     Route: 065
  8. ACTONEL [Concomitant]
     Route: 065
  9. INDERAL [Concomitant]
     Route: 065
  10. LIPITOR [Concomitant]
     Route: 065
     Dates: start: 20030101
  11. WELLBUTRIN [Concomitant]
     Route: 065
     Dates: start: 20030101, end: 20040101
  12. XANAX [Concomitant]
     Route: 065
     Dates: start: 20030101, end: 20030101
  13. NEURONTIN [Concomitant]
     Route: 065
  14. NEXIUM [Concomitant]
     Route: 065
  15. COUMADIN [Concomitant]
     Route: 065
     Dates: start: 20030101
  16. DARVOCET-N 100 [Concomitant]
     Route: 065
     Dates: start: 20030101
  17. PRILOSEC [Concomitant]
     Route: 065
     Dates: start: 20030101

REACTIONS (21)
  - ACUTE CORONARY SYNDROME [None]
  - ADHESION [None]
  - ANGINA PECTORIS [None]
  - BACK PAIN [None]
  - BREAST CANCER [None]
  - BRONCHITIS [None]
  - CARDIAC VALVE DISEASE [None]
  - CHEST PAIN [None]
  - CORONARY ARTERY DISEASE [None]
  - DIARRHOEA [None]
  - DYSPNOEA [None]
  - EMOTIONAL DISTRESS [None]
  - FAECES DISCOLOURED [None]
  - GASTROOESOPHAGEAL REFLUX DISEASE [None]
  - HERNIA [None]
  - INTESTINAL OBSTRUCTION [None]
  - MELAENA [None]
  - MYOCARDIAL INFARCTION [None]
  - NAUSEA [None]
  - OSTEOARTHRITIS [None]
  - PEPTIC ULCER [None]
